FAERS Safety Report 23294040 (Version 1)
Quarter: 2023Q4

REPORT INFORMATION
  Report Type: Spontaneous
  Country: US (occurrence: US)
  Receive Date: 20231213
  Receipt Date: 20231213
  Transmission Date: 20240110
  Serious: No
  Sender: FDA-Public Use
  Company Number: US-SANDOZ-SDZ2023US067172

PATIENT
  Age: 15 Year
  Sex: Male

DRUGS (3)
  1. RECLAST [Suspect]
     Active Substance: ZOLEDRONIC ACID
     Indication: Product used for unknown indication
     Dosage: UNK
     Route: 065
  2. RECLAST [Suspect]
     Active Substance: ZOLEDRONIC ACID
     Dosage: UNK, EVERY 6 MONTHS (INFUSION TIME SHORTER THAN PREVIOUS)
     Route: 065
     Dates: start: 20231114, end: 20231114
  3. VYONDYS 53 [Suspect]
     Active Substance: GOLODIRSEN
     Indication: Product used for unknown indication
     Dosage: UNK
     Route: 042
     Dates: end: 20231115

REACTIONS (6)
  - Photophobia [Unknown]
  - Nausea [Unknown]
  - Vomiting [Unknown]
  - Dizziness [Unknown]
  - Headache [Unknown]
  - Pyrexia [Unknown]

NARRATIVE: CASE EVENT DATE: 20231114
